FAERS Safety Report 26018847 (Version 2)
Quarter: 2025Q4

REPORT INFORMATION
  Report Type: Spontaneous
  Country: EU (occurrence: EU)
  Receive Date: 20251110
  Receipt Date: 20251113
  Transmission Date: 20260117
  Serious: Yes (Other)
  Sender: SUNOVION
  Company Number: EU-CNX THERAPEUTICS-2025CNX010050

PATIENT
  Age: 24 Year
  Sex: Male
  Weight: 58 kg

DRUGS (1)
  1. LATUDA [Suspect]
     Active Substance: LURASIDONE HYDROCHLORIDE
     Indication: Schizophrenia
     Dosage: 37 MG, QD
     Route: 048
     Dates: start: 2021, end: 2022

REACTIONS (3)
  - Limb discomfort [Recovered/Resolved]
  - Akathisia [Recovered/Resolved]
  - Gait disturbance [Recovered/Resolved]

NARRATIVE: CASE EVENT DATE: 20210101
